FAERS Safety Report 10750269 (Version 1)
Quarter: 2015Q1

REPORT INFORMATION
  Report Type: Report from Study
  Country: US (occurrence: US)
  Receive Date: 20150129
  Receipt Date: 20150129
  Transmission Date: 20150721
  Serious: Yes (Hospitalization)
  Sender: FDA-Public Use
  Company Number: US-009507513-1501USA009739

PATIENT
  Age: 62 Year
  Sex: Female

DRUGS (15)
  1. TEMODAR [Suspect]
     Active Substance: TEMOZOLOMIDE
     Dosage: UNK
     Dates: start: 20140716
  2. ATIVAN [Concomitant]
     Active Substance: LORAZEPAM
  3. PROTONIX [Concomitant]
     Active Substance: PANTOPRAZOLE SODIUM
  4. ZOLOFT [Concomitant]
     Active Substance: SERTRALINE HYDROCHLORIDE
  5. ZESTRIL [Concomitant]
     Active Substance: LISINOPRIL
  6. TEMODAR [Suspect]
     Active Substance: TEMOZOLOMIDE
     Dosage: 100MG/M2, DAY 1-5 OF 28 DAY CYCLE(180MG)
     Route: 048
     Dates: start: 20140131, end: 20140614
  7. KEPPRA [Concomitant]
     Active Substance: LEVETIRACETAM
  8. ZOFRAN [Concomitant]
     Active Substance: ONDANSETRON HYDROCHLORIDE
  9. MIRALAX [Concomitant]
     Active Substance: POLYETHYLENE GLYCOL 3350
  10. LOMUSTINE. [Suspect]
     Active Substance: LOMUSTINE
     Indication: GLIOBLASTOMA
     Dosage: 140 MG, ONCE IN EVERY 6 WEEKS
     Route: 065
     Dates: start: 20140819
  11. GLUCOPHAGE [Concomitant]
     Active Substance: METFORMIN HYDROCHLORIDE
  12. IMODIUM [Concomitant]
     Active Substance: LOPERAMIDE HYDROCHLORIDE
  13. BEVACIZUMAB [Suspect]
     Active Substance: BEVACIZUMAB
     Indication: GLIOBLASTOMA
     Dosage: (700 MG), Q2W
     Route: 042
     Dates: start: 20131122, end: 20140819
  14. DECADRON [Concomitant]
     Active Substance: DEXAMETHASONE
  15. VITAMIN B (UNSPECIFIED) [Concomitant]

REACTIONS (11)
  - Thrombocytopenia [Unknown]
  - Fatigue [Unknown]
  - Disease progression [Unknown]
  - Hypophagia [Unknown]
  - Disease progression [Unknown]
  - Pyramidal tract syndrome [Unknown]
  - Hemiparesis [Unknown]
  - Confusional state [Unknown]
  - Seizure [Unknown]
  - Dehydration [Unknown]
  - Pyrexia [Unknown]

NARRATIVE: CASE EVENT DATE: 20140708
